FAERS Safety Report 8823310 (Version 4)
Quarter: 2012Q4

REPORT INFORMATION
  Report Type: 
  Country: CA (occurrence: CA)
  Receive Date: 20121003
  Receipt Date: 20121210
  Transmission Date: 20130627
  Serious: Yes (Hospitalization)
  Sender: FDA-Public Use
  Company Number: CA-SANOFI-AVENTIS-2012SA070928

PATIENT
  Age: 68 Year
  Sex: Female
  Weight: 36.9 kg

DRUGS (11)
  1. FERRLECIT [Suspect]
     Indication: IRON DEFICIENCY ANEMIA
     Dosage: recieved once dose
     Route: 042
     Dates: start: 20120913, end: 20120913
  2. IMMUNOSUPPRESSIVE AGENTS [Concomitant]
  3. CALCIUM [Concomitant]
  4. MULTIVITAMINS [Concomitant]
  5. ADVAIR [Concomitant]
  6. LEVOTHYROXINE [Concomitant]
  7. OXAZEPAM [Concomitant]
  8. PANTOPRAZOLE [Concomitant]
  9. SODIUM BICARBONATE [Concomitant]
  10. VITAMIN D [Concomitant]
  11. IRON [Concomitant]
     Route: 048

REACTIONS (9)
  - Anaphylactic reaction [Recovered/Resolved]
  - Dysphonia [Recovered/Resolved]
  - Pain in extremity [Recovered/Resolved]
  - Pain in extremity [Recovered/Resolved]
  - Back pain [Recovered/Resolved]
  - Blood pressure decreased [Recovered/Resolved]
  - Stridor [Recovered/Resolved]
  - Chest discomfort [Recovered/Resolved]
  - Dyspnoea [Recovered/Resolved]
